FAERS Safety Report 14111390 (Version 1)
Quarter: 2017Q4

REPORT INFORMATION
  Report Type: Spontaneous
  Country: ES (occurrence: ES)
  Receive Date: 20171020
  Receipt Date: 20171020
  Transmission Date: 20180321
  Serious: Yes (Other)
  Sender: FDA-Public Use
  Company Number: ES-KINDOS PHARMACEUTICALS CO., LTD.-2017MHL00002

PATIENT
  Age: 66 Year
  Sex: Female

DRUGS (1)
  1. CARBOPLATIN. [Suspect]
     Active Substance: CARBOPLATIN
     Indication: OVARIAN CANCER
     Route: 065

REACTIONS (3)
  - Thrombocytopenia [Unknown]
  - Anaphylactic reaction [Unknown]
  - Haemolytic anaemia [Unknown]
